FAERS Safety Report 10588512 (Version 1)
Quarter: 2014Q4

REPORT INFORMATION
  Report Type: Spontaneous
  Country: US (occurrence: US)
  Receive Date: 20141117
  Receipt Date: 20141117
  Transmission Date: 20150529
  Serious: Yes (Other)
  Sender: FDA-Public Use
  Company Number: US-BAUSCH-BL-2014-008248

PATIENT
  Sex: Female
  Weight: 53.57 kg

DRUGS (1)
  1. XENAZINE [Suspect]
     Active Substance: TETRABENAZINE
     Indication: HUNTINGTON^S DISEASE
     Route: 048
     Dates: start: 2014

REACTIONS (2)
  - Tooth abscess [Unknown]
  - Tooth loss [Unknown]

NARRATIVE: CASE EVENT DATE: 2014
